FAERS Safety Report 8100171-X (Version None)
Quarter: 2012Q1

REPORT INFORMATION
  Report Type: 
  Country: None (occurrence: None)
  Receive Date: 20120129
  Receipt Date: 20111129
  Transmission Date: 20120608
  Serious: No
  Sender: FDA-Public Use
  Company Number: US-ABBOTT-11P-163-0879412-00

PATIENT
  Sex: Female
  Weight: 63.56 kg

DRUGS (8)
  1. TEGRETOL [Concomitant]
     Indication: CONVULSION
  2. VITAMIN B-12 [Concomitant]
     Indication: VITAMIN SUPPLEMENTATION
  3. HUMIRA [Suspect]
     Indication: CROHN'S DISEASE
     Dates: start: 20110222
  4. VITAMIN D [Concomitant]
     Indication: SUPPLEMENTATION THERAPY
  5. LISINOPRIL [Concomitant]
     Indication: HYPERTENSION
  6. MULTI-VITAMIN [Concomitant]
     Indication: VITAMIN SUPPLEMENTATION
  7. AMITRIPTYLINE HCL [Concomitant]
     Indication: DEPRESSION
  8. PREDNISONE TAB [Concomitant]
     Indication: CROHN'S DISEASE

REACTIONS (4)
  - MEMORY IMPAIRMENT [None]
  - SPEECH DISORDER [None]
  - DISTURBANCE IN ATTENTION [None]
  - FATIGUE [None]
